FAERS Safety Report 11393804 (Version 1)
Quarter: 2015Q3

REPORT INFORMATION
  Report Type: Spontaneous
  Country: US (occurrence: US)
  Receive Date: 20150819
  Receipt Date: 20150819
  Transmission Date: 20151125
  Serious: No
  Sender: FDA-Public Use
  Company Number: US-PAR PHARMACEUTICAL, INC-2015SCPR013964

PATIENT

DRUGS (1)
  1. PRAMIPEXOLE. [Suspect]
     Active Substance: PRAMIPEXOLE
     Indication: PRODUCT USED FOR UNKNOWN INDICATION
     Dosage: UNK UNK, UNKNOWN
     Route: 065

REACTIONS (11)
  - Insomnia [Unknown]
  - Product substitution issue [Unknown]
  - Dysgraphia [Unknown]
  - Mood swings [Unknown]
  - Chest pain [Unknown]
  - Pain [Unknown]
  - Drug ineffective [Unknown]
  - Product quality issue [Unknown]
  - Decreased appetite [Unknown]
  - Irritability [Unknown]
  - Gait disturbance [Unknown]
